FAERS Safety Report 14021521 (Version 3)
Quarter: 2017Q4

REPORT INFORMATION
  Report Type: Report from Study
  Country: US (occurrence: US)
  Receive Date: 20170928
  Receipt Date: 20171102
  Transmission Date: 20180321
  Serious: Yes (Hospitalization, Other)
  Sender: FDA-Public Use
  Company Number: US-TEVA-798258USA

PATIENT
  Age: 75 Year
  Sex: Female

DRUGS (6)
  1. AUSTEDO [Suspect]
     Active Substance: DEUTETRABENAZINE
     Dosage: 12 MILLIGRAM DAILY; 6 MG TWICE DAILY
     Route: 065
     Dates: start: 20170923
  2. DEPAKOTE [Concomitant]
     Active Substance: DIVALPROEX SODIUM
  3. AUSTEDO [Suspect]
     Active Substance: DEUTETRABENAZINE
     Dosage: 6 MILLIGRAM DAILY; 6 MG ONCE DAILY
     Route: 065
     Dates: start: 20170914
  4. AUSTEDO [Suspect]
     Active Substance: DEUTETRABENAZINE
     Indication: TARDIVE DYSKINESIA
     Dosage: 6 MILLIGRAM DAILY;
     Route: 065
     Dates: start: 20170808
  5. ZYPREXA [Concomitant]
     Active Substance: OLANZAPINE
  6. AUSTEDO [Suspect]
     Active Substance: DEUTETRABENAZINE
     Dosage: 12 MILLIGRAM DAILY; 2ND WEEK
     Route: 065
     Dates: start: 201708

REACTIONS (6)
  - Hip fracture [Unknown]
  - Dehydration [Unknown]
  - Electrocardiogram QT prolonged [Recovering/Resolving]
  - Heart rate abnormal [Recovered/Resolved]
  - Syncope [Recovered/Resolved]
  - Drug ineffective [Unknown]

NARRATIVE: CASE EVENT DATE: 2017
